FAERS Safety Report 6914279-5 (Version None)
Quarter: 2010Q3

REPORT INFORMATION
  Report Type: 
  Country: None (occurrence: None)
  Receive Date: 20100809
  Receipt Date: 20100729
  Transmission Date: 20110219
  Serious: Yes (Other)
  Sender: FDA-Public Use
  Company Number: B0664127A

PATIENT
  Sex: Female

DRUGS (6)
  1. LAMICTAL [Suspect]
     Indication: EPILEPSY
     Dosage: 25MG TWICE PER DAY
     Route: 048
     Dates: start: 20100513, end: 20100517
  2. DEPAKENE [Concomitant]
     Indication: PRODUCT USED FOR UNKNOWN INDICATION
     Dosage: 700MG PER DAY
     Route: 048
  3. CLONAZEPAM [Concomitant]
     Indication: EPILEPSY
     Dosage: 4MG PER DAY
     Route: 048
  4. EXCEGRAN [Concomitant]
     Indication: EPILEPSY
     Dosage: 200MG PER DAY
     Route: 048
  5. MYSTAN [Concomitant]
     Indication: EPILEPSY
     Dosage: 25MG PER DAY
     Route: 048
  6. SELENICA-R [Concomitant]
     Indication: EPILEPSY
     Dosage: 700MG PER DAY
     Route: 048

REACTIONS (2)
  - CONVULSION [None]
  - INSOMNIA [None]
